FAERS Safety Report 9785657 (Version 1)
Quarter: 2013Q4

REPORT INFORMATION
  Report Type: Spontaneous
  Country: US (occurrence: None)
  Receive Date: 20131226
  Receipt Date: 20131226
  Transmission Date: 20140711
  Serious: Yes (Other)
  Sender: FDA-Public Use
  Company Number: None

PATIENT
  Sex: Female
  Weight: 88.45 kg

DRUGS (11)
  1. FUROSEMIDE [Suspect]
     Indication: CARDIAC FAILURE CONGESTIVE
     Dosage: 40  1 A DAY  ORAL,  BUT LIQUID THROUGH IV
     Route: 048
     Dates: start: 201301
  2. PREVASTATIN SODIUM [Concomitant]
  3. LENSENOPRIL [Concomitant]
  4. SPIROLACTONE [Concomitant]
  5. ATTENOL [Concomitant]
  6. VUT C [Concomitant]
  7. COQ10 [Concomitant]
  8. MULTI VIT [Concomitant]
  9. MAG [Concomitant]
  10. POT [Concomitant]
  11. ZINC [Concomitant]

REACTIONS (1)
  - Muscle spasms [None]
